FAERS Safety Report 23951504 (Version 1)
Quarter: 2024Q2

REPORT INFORMATION
  Report Type: Spontaneous
  Country: US (occurrence: US)
  Receive Date: 20240607
  Receipt Date: 20240607
  Transmission Date: 20240716
  Serious: Yes (Other)
  Sender: FDA-Public Use
  Company Number: US-Calliditas-2024CAL00942

PATIENT
  Age: 32 Year
  Sex: Female

DRUGS (1)
  1. TARPEYO [Suspect]
     Active Substance: BUDESONIDE
     Indication: IgA nephropathy
     Route: 048
     Dates: start: 20240503

REACTIONS (5)
  - End stage renal disease [Unknown]
  - Peritoneal dialysis [Unknown]
  - Chest discomfort [Unknown]
  - Dyspnoea [Unknown]
  - Swelling face [Unknown]
